FAERS Safety Report 10024205 (Version 7)
Quarter: 2014Q3

REPORT INFORMATION
  Report Type: Spontaneous
  Country: US (occurrence: US)
  Receive Date: 20140320
  Receipt Date: 20140918
  Transmission Date: 20150326
  Serious: No
  Sender: FDA-Public Use
  Company Number: US-PFIZER INC-2014078765

PATIENT
  Age: 62 Year
  Sex: Male
  Weight: 73.92 kg

DRUGS (9)
  1. FISH OIL [Concomitant]
     Active Substance: FISH OIL
     Dosage: UNK
  2. OXYCODONE [Concomitant]
     Active Substance: OXYCODONE
     Dosage: 5 MG, AS NEEDED
  3. VITAMIN D [Concomitant]
     Active Substance: CHOLECALCIFEROL
     Indication: VITAMIN D DEFICIENCY
     Dosage: UNK
  4. SUTENT [Suspect]
     Active Substance: SUNITINIB MALATE
     Indication: RENAL CELL CARCINOMA
     Dosage: 50 MG, 1X/DAY
     Route: 048
     Dates: start: 20130721, end: 201312
  5. GAS-X [Concomitant]
     Active Substance: DIMETHICONE
     Indication: FLATULENCE
     Dosage: UNK
  6. SUTENT [Suspect]
     Active Substance: SUNITINIB MALATE
     Dosage: 37.5 MG, 1X/DAY
     Route: 048
     Dates: start: 20131201
  7. SUTENT [Suspect]
     Active Substance: SUNITINIB MALATE
     Dosage: UNK
     Dates: start: 20140519, end: 20140728
  8. VITAMIN B12 [Concomitant]
     Active Substance: CYANOCOBALAMIN
     Indication: VITAMIN B12 DEFICIENCY
     Dosage: UNK
  9. DULCOLAX [Concomitant]
     Active Substance: BISACODYL OR DOCUSATE SODIUM
     Dosage: UNK

REACTIONS (34)
  - Glossodynia [Not Recovered/Not Resolved]
  - Lip exfoliation [Unknown]
  - Hypoaesthesia [Unknown]
  - Abnormal behaviour [Unknown]
  - Disease progression [Unknown]
  - Fatigue [Not Recovered/Not Resolved]
  - Alopecia [Unknown]
  - Blister [Not Recovered/Not Resolved]
  - Oral discomfort [Not Recovered/Not Resolved]
  - Paranoia [Unknown]
  - Vitamin B12 deficiency [Unknown]
  - Renal cell carcinoma [Unknown]
  - Dysgeusia [Recovered/Resolved]
  - Skin exfoliation [Recovered/Resolved]
  - Decreased appetite [Not Recovered/Not Resolved]
  - Localised oedema [Not Recovered/Not Resolved]
  - Hyperkeratosis [Unknown]
  - Skin lesion [Unknown]
  - Weight decreased [Unknown]
  - Constipation [Unknown]
  - Dysgeusia [Unknown]
  - Cough [Unknown]
  - Stomatitis [Not Recovered/Not Resolved]
  - Abdominal discomfort [Not Recovered/Not Resolved]
  - Pain in extremity [Unknown]
  - Ageusia [Unknown]
  - Flatulence [Unknown]
  - Memory impairment [Unknown]
  - Vitamin D deficiency [Unknown]
  - Skin exfoliation [Unknown]
  - Emotional disorder [Recovered/Resolved]
  - Musculoskeletal pain [Not Recovered/Not Resolved]
  - Hair colour changes [Unknown]
  - Somnolence [Unknown]

NARRATIVE: CASE EVENT DATE: 2014
